FAERS Safety Report 24005161 (Version 1)
Quarter: 2024Q2

REPORT INFORMATION
  Report Type: Spontaneous
  Country: US (occurrence: None)
  Receive Date: 20240621
  Receipt Date: 20240621
  Transmission Date: 20240716
  Serious: No
  Sender: FDA-Public Use
  Company Number: None

PATIENT
  Sex: Female
  Weight: 110.25 kg

DRUGS (1)
  1. ARIPIPRAZOLE [Suspect]
     Active Substance: ARIPIPRAZOLE
     Indication: Bipolar disorder

REACTIONS (9)
  - Mania [None]
  - Feeling abnormal [None]
  - Thinking abnormal [None]
  - Fear of disease [None]
  - Mood swings [None]
  - Menstrual disorder [None]
  - Amnesia [None]
  - Depressed mood [None]
  - Impulse-control disorder [None]
